FAERS Safety Report 15520857 (Version 1)
Quarter: 2018Q4

REPORT INFORMATION
  Report Type: Report from Study
  Country: US (occurrence: US)
  Receive Date: 20181017
  Receipt Date: 20181017
  Transmission Date: 20190205
  Serious: No
  Sender: FDA-Public Use
  Company Number: US-AMGEN-USASL2018115649

PATIENT
  Age: 52 Year
  Sex: Male

DRUGS (2)
  1. REPATHA [Suspect]
     Active Substance: EVOLOCUMAB
     Indication: ARTERIOSCLEROSIS
     Dosage: 140 MG, Q2WK
     Route: 065
     Dates: start: 20180818
  2. REPATHA [Suspect]
     Active Substance: EVOLOCUMAB
     Indication: HYPERCHOLESTEROLAEMIA

REACTIONS (3)
  - Diarrhoea [Unknown]
  - Vomiting [Unknown]
  - Gastric disorder [Unknown]

NARRATIVE: CASE EVENT DATE: 20180818
